FAERS Safety Report 5116894-0 (Version None)
Quarter: 2006Q3

REPORT INFORMATION
  Report Type: 
  Country: None (occurrence: None)
  Receive Date: 20060925
  Receipt Date: 20060913
  Transmission Date: 20061208
  Serious: Yes (Hospitalization)
  Sender: FDA-Public Use
  Company Number: 2006BH013367

PATIENT
  Sex: Female
  Weight: 59 kg

DRUGS (2)
  1. EXTRANEAL [Suspect]
     Indication: PERITONEAL DIALYSIS
     Dosage: 1 BAG; EVERY DAY; IP
     Route: 033
     Dates: start: 20060707, end: 20060707
  2. GAMBROSOL (DIALYTE) [Suspect]
     Indication: PERITONEAL DIALYSIS
     Dosage: 2 BAG; EVERY DAY
     Dates: start: 20050801

REACTIONS (4)
  - ABDOMINAL PAIN [None]
  - ARTHRALGIA [None]
  - MUSCULOSKELETAL PAIN [None]
  - PNEUMOPERITONEUM [None]
